FAERS Safety Report 13777086 (Version 1)
Quarter: 2017Q3

REPORT INFORMATION
  Report Type: Other
  Country: AU (occurrence: AU)
  Receive Date: 20170720
  Receipt Date: 20170720
  Transmission Date: 20171127
  Serious: Yes (Death)
  Sender: FDA-Public Use
  Company Number: AU-ALSI-201700204

PATIENT
  Age: 72 Year
  Sex: Male

DRUGS (5)
  1. VALIUM [Concomitant]
     Active Substance: DIAZEPAM
     Dates: start: 19830905, end: 19830905
  2. 100% OXYGEN [Suspect]
     Active Substance: OXYGEN
     Indication: ANAESTHESIA
     Route: 055
     Dates: start: 19830905, end: 19830905
  3. KETAMINE HYDROCHLORIDE. [Suspect]
     Active Substance: KETAMINE HYDROCHLORIDE
     Dates: start: 19830905, end: 19830905
  4. SUXAMETHONIUM [Concomitant]
     Active Substance: SUCCINYLCHOLINE
     Dates: start: 19830905, end: 19830905
  5. NITROUS OXIDE. [Suspect]
     Active Substance: NITROUS OXIDE
     Route: 055

REACTIONS (5)
  - Wrong drug administered [Fatal]
  - Accidental underdose [Fatal]
  - Cyanosis [Fatal]
  - Cardiac arrest [Fatal]
  - Device connection issue [Fatal]

NARRATIVE: CASE EVENT DATE: 19830905
